FAERS Safety Report 13717146 (Version 1)
Quarter: 2017Q3

REPORT INFORMATION
  Report Type: Spontaneous
  Country: US (occurrence: US)
  Receive Date: 20170704
  Receipt Date: 20170704
  Transmission Date: 20171127
  Serious: Yes (Other)
  Sender: FDA-Public Use
  Company Number: None

PATIENT
  Age: 25 Year
  Sex: Male
  Weight: 59.4 kg

DRUGS (4)
  1. CALCUIM ANTAGONIST [Concomitant]
     Active Substance: UNSPECIFIED INGREDIENT
  2. 100% HEMP EXTRA VIRGIN NO THC [Suspect]
     Active Substance: CANNABIS SATIVA SEED OIL
     Indication: SLEEP DISORDER
     Dosage: ?          OTHER STRENGTH:DONT REMEMBER;QUANTITY:3 DROP(S);?
     Route: 048
  3. VITAMIN D [Concomitant]
     Active Substance: CHOLECALCIFEROL
  4. VITAMIN A [Concomitant]
     Active Substance: VITAMIN A

REACTIONS (4)
  - Vomiting [None]
  - Nausea [None]
  - Product quality issue [None]
  - Dyspepsia [None]

NARRATIVE: CASE EVENT DATE: 20170626
